FAERS Safety Report 5935066-0 (Version None)
Quarter: 2008Q4

REPORT INFORMATION
  Report Type: 
  Country: None (occurrence: None)
  Receive Date: 20081030
  Receipt Date: 20081022
  Transmission Date: 20090506
  Serious: Yes (Hospitalization, Other)
  Sender: FDA-Public Use
  Company Number: GB-WYE-G02361508

PATIENT

DRUGS (2)
  1. GEMTUZUMAB OZOGAMICIN [Suspect]
     Indication: ACUTE MYELOID LEUKAEMIA
     Dosage: UNKNOWN
     Dates: start: 20070223
  2. DAUNORUBICIN HCL [Concomitant]
     Dosage: UNKNOWN
     Dates: start: 20070223

REACTIONS (6)
  - CHOLECYSTITIS [None]
  - COLLAPSE OF LUNG [None]
  - HIATUS HERNIA [None]
  - LOWER RESPIRATORY TRACT INFECTION [None]
  - PLEURAL EFFUSION [None]
  - PULMONARY OEDEMA [None]
